FAERS Safety Report 10098984 (Version 2)
Quarter: 2014Q2

REPORT INFORMATION
  Report Type: Spontaneous
  Country: US (occurrence: US)
  Receive Date: 20140423
  Receipt Date: 20140429
  Transmission Date: 20141212
  Serious: Yes (Other)
  Sender: FDA-Public Use
  Company Number: US-LUNDBECK-DKLU1099315

PATIENT
  Age: 27 Year
  Sex: Male
  Weight: 129 kg

DRUGS (9)
  1. ONFI [Suspect]
     Indication: EPILEPSY
     Route: 048
     Dates: start: 201402
  2. ONFI [Suspect]
     Route: 048
     Dates: start: 20140328
  3. LAMICTAL [Concomitant]
     Indication: PRODUCT USED FOR UNKNOWN INDICATION
  4. KEPPRA XR [Concomitant]
     Indication: PRODUCT USED FOR UNKNOWN INDICATION
  5. FELBATOL [Concomitant]
     Indication: PRODUCT USED FOR UNKNOWN INDICATION
  6. FELBATOL [Concomitant]
  7. FELBATOL [Concomitant]
  8. LYRICA [Concomitant]
     Indication: PRODUCT USED FOR UNKNOWN INDICATION
  9. LYRICA [Concomitant]

REACTIONS (2)
  - Generalised tonic-clonic seizure [Recovered/Resolved]
  - Convulsion [Recovered/Resolved]
